FAERS Safety Report 8438163-3 (Version None)
Quarter: 2012Q2

REPORT INFORMATION
  Report Type: 
  Country: None (occurrence: None)
  Receive Date: 20120614
  Receipt Date: 20120606
  Transmission Date: 20120825
  Serious: Yes (Death, Hospitalization)
  Sender: FDA-Public Use
  Company Number: DE-BAXTER-2012BAX007708

PATIENT
  Age: 69 Year
  Sex: Female
  Weight: 65.2 kg

DRUGS (11)
  1. GRANISETRON HYDROCHLORIDE [Concomitant]
     Dates: start: 20100614
  2. RANITIDINE [Concomitant]
     Dates: start: 20100614
  3. DEXAMETHASONE [Concomitant]
     Dates: start: 20100614
  4. FLUDARABINE PHOSPHATE [Suspect]
     Indication: CHRONIC LYMPHOCYTIC LEUKAEMIA
     Route: 042
     Dates: start: 20100615
  5. GRANISETRON [Concomitant]
     Dates: start: 20100614
  6. CLEMASTINE FUMARATE [Concomitant]
     Dates: start: 20100614
  7. DIPYRONE TAB [Concomitant]
     Dates: start: 20101018
  8. RITUXIMAB [Suspect]
     Indication: CHRONIC LYMPHOCYTIC LEUKAEMIA
     Route: 042
     Dates: start: 20100614
  9. LOPERAMIDE [Concomitant]
     Dates: start: 20101018
  10. ZOFRAN [Concomitant]
     Dates: start: 20101018
  11. CYCLOPHOSPHAMIDE [Suspect]
     Indication: CHRONIC LYMPHOCYTIC LEUKAEMIA
     Route: 042
     Dates: start: 20100615

REACTIONS (1)
  - NEUTROPENIC COLITIS [None]
